FAERS Safety Report 9128165 (Version 3)
Quarter: 2013Q2

REPORT INFORMATION
  Report Type: Spontaneous
  Country: US (occurrence: US)
  Receive Date: 20130228
  Receipt Date: 20130503
  Transmission Date: 20140414
  Serious: No
  Sender: FDA-Public Use
  Company Number: US-009507513-1302USA007758

PATIENT
  Sex: Male

DRUGS (3)
  1. PRINIVIL [Suspect]
     Route: 048
  2. CELEXA [Concomitant]
     Dosage: 40 MG, QD
     Route: 048
  3. NORVASC [Concomitant]
     Dosage: 10 MG, QD
     Route: 048

REACTIONS (2)
  - Hypersensitivity [Unknown]
  - Cough [Unknown]
